FAERS Safety Report 6612088-8 (Version None)
Quarter: 2010Q1

REPORT INFORMATION
  Report Type: 
  Country: None (occurrence: None)
  Receive Date: 20100303
  Receipt Date: 20100224
  Transmission Date: 20100710
  Serious: Yes (Hospitalization)
  Sender: FDA-Public Use
  Company Number: B0637174A

PATIENT
  Age: 30 Year
  Sex: Female

DRUGS (1)
  1. CLAVAMOX [Suspect]
     Indication: TOOTHACHE
     Dosage: 1MG PER DAY
     Route: 048

REACTIONS (6)
  - ANGIOEDEMA [None]
  - BLOOD PRESSURE FLUCTUATION [None]
  - DYSPNOEA [None]
  - HYPERSENSITIVITY [None]
  - INFECTION [None]
  - SINUSITIS [None]
